FAERS Safety Report 16215284 (Version 2)
Quarter: 2019Q2

REPORT INFORMATION
  Report Type: Report from Study
  Country: None (occurrence: CN)
  Receive Date: 20190419
  Receipt Date: 20190426
  Transmission Date: 20190711
  Serious: Yes (Death, Life-Threatening, Other)
  Sender: FDA-Public Use
  Company Number: CN-ABBVIE-19K-035-2751475-00

PATIENT
  Age: 73 Year
  Sex: Female

DRUGS (1)
  1. HUMIRA [Suspect]
     Active Substance: ADALIMUMAB
     Indication: PSORIASIS
     Route: 058
     Dates: start: 20190201, end: 20190325

REACTIONS (5)
  - Brain stem haemorrhage [Fatal]
  - Coma [Unknown]
  - Hypertension [Unknown]
  - Chest discomfort [Unknown]
  - Plasma cell myeloma [Unknown]

NARRATIVE: CASE EVENT DATE: 20190415
